FAERS Safety Report 4452872-2 (Version None)
Quarter: 2004Q3

REPORT INFORMATION
  Report Type: 
  Country: None (occurrence: None)
  Receive Date: 20040916
  Receipt Date: 20030916
  Transmission Date: 20050211
  Serious: Yes (Death, Other)
  Sender: FDA-Public Use
  Company Number: US-JNJFOC-20040901280

PATIENT
  Age: 25 Year
  Sex: Female

DRUGS (3)
  1. IBUPROFEN [Suspect]
     Indication: SUICIDE ATTEMPT
  2. DIPHENHYDRAMINE HCL [Suspect]
     Indication: SUICIDE ATTEMPT
  3. PSEUDOEPHEDRINE HCL [Suspect]
     Indication: SUICIDE ATTEMPT

REACTIONS (9)
  - BRAIN DEATH [None]
  - CARDIAC ARREST [None]
  - CEREBRAL ISCHAEMIA [None]
  - COMA [None]
  - COMPLETED SUICIDE [None]
  - CONVULSION [None]
  - MULTIPLE DRUG OVERDOSE INTENTIONAL [None]
  - RESPIRATORY ARREST [None]
  - TACHYARRHYTHMIA [None]
